FAERS Safety Report 8554449-6 (Version None)
Quarter: 2012Q3

REPORT INFORMATION
  Report Type: 
  Country: None (occurrence: None)
  Receive Date: 20120731
  Receipt Date: 20120725
  Transmission Date: 20120928
  Serious: No
  Sender: FDA-Public Use
  Company Number: US-009507513-1207USA006101

PATIENT

DRUGS (2)
  1. TIMOLOL MALEATE [Suspect]
     Indication: GLAUCOMA
     Dosage: 1 DF, QD
     Route: 031
     Dates: start: 20080101
  2. TIMOLOL MALEATE [Suspect]
     Dosage: 1 UNK, UNK
     Dates: start: 20120604

REACTIONS (6)
  - EYE INFLAMMATION [None]
  - EYE SWELLING [None]
  - EYE PRURITUS [None]
  - BLEPHAROSPASM [None]
  - PRODUCT QUALITY ISSUE [None]
  - OCULAR HYPERAEMIA [None]
